FAERS Safety Report 23724671 (Version 2)
Quarter: 2024Q2

REPORT INFORMATION
  Report Type: Spontaneous
  Country: BR (occurrence: BR)
  Receive Date: 20240409
  Receipt Date: 20240422
  Transmission Date: 20240716
  Serious: Yes (Other)
  Sender: FDA-Public Use
  Company Number: BR-009507513-2404BRA005197

PATIENT
  Age: 54 Year
  Sex: Female

DRUGS (1)
  1. KEYTRUDA [Suspect]
     Active Substance: PEMBROLIZUMAB
     Indication: Malignant melanoma
     Dosage: 8 CYCLES

REACTIONS (4)
  - Diabetes mellitus [Unknown]
  - Diabetes mellitus inadequate control [Unknown]
  - Cortisol abnormal [Unknown]
  - Malaise [Unknown]
